FAERS Safety Report 21516896 (Version 1)
Quarter: 2022Q4

REPORT INFORMATION
  Report Type: Report from Study
  Country: US (occurrence: US)
  Receive Date: 20221028
  Receipt Date: 20221028
  Transmission Date: 20230112
  Serious: No
  Sender: FDA-Public Use
  Company Number: US-ABBVIE-4173441

PATIENT
  Sex: Male

DRUGS (1)
  1. IMBRUVICA [Suspect]
     Active Substance: IBRUTINIB
     Indication: Lymphocytic leukaemia
     Dosage: FORM STRENGTH 140 MILLIGRAM
     Route: 048

REACTIONS (4)
  - Hearing aid user [Unknown]
  - Ear pain [Unknown]
  - Contusion [Unknown]
  - Ear injury [Unknown]
